FAERS Safety Report 4951325-2 (Version None)
Quarter: 2006Q1

REPORT INFORMATION
  Report Type: 
  Country: None (occurrence: None)
  Receive Date: 20060317
  Receipt Date: 20060301
  Transmission Date: 20060701
  Serious: Yes (Death, Hospitalization, Other)
  Sender: FDA-Public Use
  Company Number: US200602001624

PATIENT
  Age: 51 Year
  Sex: Male
  Weight: 118.7 kg

DRUGS (17)
  1. GEMZAR [Suspect]
     Indication: PANCREATIC CARCINOMA METASTATIC
     Dosage: SEE IMAGE
     Route: 042
     Dates: start: 20050628, end: 20050628
  2. GEMZAR [Suspect]
     Indication: PANCREATIC CARCINOMA METASTATIC
     Dosage: SEE IMAGE
     Route: 042
     Dates: start: 20050715, end: 20050715
  3. ARANESP [Concomitant]
  4. LEXAPRO /USA/(ESCITALOPRAM) [Concomitant]
  5. LORAZEPAM [Concomitant]
  6. GLIMEPIRIDE [Concomitant]
  7. IMODIUM [Concomitant]
  8. DIOVAN [Concomitant]
  9. FLAGYL [Concomitant]
  10. CRESTOR [Concomitant]
  11. PROTONIX [Concomitant]
  12. MEGACE [Concomitant]
  13. LACTULOSE [Concomitant]
  14. LIBRAX /SCH/ (CHLORDIAZEPOXIDE, CLIDINIUM BROMIDE) [Concomitant]
  15. DURAGESIC-100 [Concomitant]
  16. MS CONTIN [Concomitant]
  17. OXYCONTIN [Concomitant]

REACTIONS (11)
  - ACUTE PRERENAL FAILURE [None]
  - CARDIO-RESPIRATORY ARREST [None]
  - DEEP VEIN THROMBOSIS [None]
  - DEHYDRATION [None]
  - DIARRHOEA [None]
  - FAILURE TO THRIVE [None]
  - HYPOGLYCAEMIA [None]
  - HYPOTENSION [None]
  - MALNUTRITION [None]
  - PANCREATIC CARCINOMA METASTATIC [None]
  - RENAL FAILURE [None]
